FAERS Safety Report 18998563 (Version 2)
Quarter: 2022Q2

REPORT INFORMATION
  Report Type: Spontaneous
  Country: US (occurrence: US)
  Receive Date: 20210311
  Receipt Date: 20220526
  Transmission Date: 20220721
  Serious: Yes (Other)
  Sender: FDA-Public Use
  Company Number: US-PFIZER INC-2020168621

PATIENT
  Age: 62 Year

DRUGS (1)
  1. PRISTIQ EXTENDED-RELEASE [Suspect]
     Active Substance: DESVENLAFAXINE SUCCINATE
     Dosage: 100 MG (STRENGTH 100 MG), QUANTITY FOR 90 DAYS: 90

REACTIONS (2)
  - Deafness [Unknown]
  - Off label use [Unknown]
